FAERS Safety Report 26075575 (Version 1)
Quarter: 2025Q4

REPORT INFORMATION
  Report Type: Spontaneous
  Country: US (occurrence: None)
  Receive Date: 20251120
  Receipt Date: 20251120
  Transmission Date: 20260117
  Serious: Yes (Hospitalization)
  Sender: FDA-CTU
  Company Number: None

PATIENT
  Sex: Female

DRUGS (3)
  1. ELFABRIO [Suspect]
     Active Substance: PEGUNIGALSIDASE ALFA-IWXJ
     Indication: Fabry^s disease
     Dosage: OTHER FREQUENCY : EVERY 14 DAYS;?
     Route: 042
     Dates: start: 20240328
  2. SODIUM CHLOR (500ML/BAG) [Concomitant]
  3. NORMAL SALINE FLUSH (10ML) [Concomitant]

REACTIONS (3)
  - Therapy interrupted [None]
  - Fall [None]
  - Ankle fracture [None]
